FAERS Safety Report 20613628 (Version 3)
Quarter: 2022Q2

REPORT INFORMATION
  Report Type: Other
  Country: US (occurrence: None)
  Receive Date: 20220319
  Receipt Date: 20220510
  Transmission Date: 20220720
  Serious: Yes (Hospitalization)
  Sender: FDA-Public Use
  Company Number: US-ROCHE-3051994

PATIENT
  Sex: Female

DRUGS (1)
  1. ESBRIET [Suspect]
     Active Substance: PIRFENIDONE
     Indication: Idiopathic pulmonary fibrosis
     Dosage: TAKE 2 TABLETS BY MOUTH 3 TIMES A DAY
     Route: 048

REACTIONS (4)
  - Cardiac disorder [Unknown]
  - Pneumonia [Unknown]
  - Cystitis [Unknown]
  - Urinary tract infection [Unknown]
